FAERS Safety Report 9097218 (Version 1)
Quarter: 2013Q1

REPORT INFORMATION
  Report Type: Spontaneous
  Country: FR (occurrence: FR)
  Receive Date: 20130212
  Receipt Date: 20130212
  Transmission Date: 20140127
  Serious: Yes (Life-Threatening, Other)
  Sender: FDA-Public Use
  Company Number: FR-PFIZER INC-2013052095

PATIENT
  Age: 80 Year
  Sex: Male

DRUGS (11)
  1. LYRICA [Suspect]
     Indication: PAIN
     Route: 048
  2. LYRICA [Suspect]
     Dosage: 1025 MG, SINGLE
     Route: 048
     Dates: start: 20121128, end: 20121128
  3. ACTISKENAN [Suspect]
     Dosage: 10 MG, UNK
     Dates: start: 20121121
  4. ACTISKENAN [Suspect]
     Dosage: 280 MG, SINGLE
     Dates: start: 20121128, end: 20121128
  5. SKENAN [Suspect]
     Indication: OSTEOARTHRITIS
     Dosage: 870 MG, SINGLE
     Dates: start: 20121128, end: 20121128
  6. CASODEX [Concomitant]
  7. AVODART [Concomitant]
  8. FORTZAAR [Concomitant]
  9. KARDEGIC [Concomitant]
  10. CRESTOR [Concomitant]
  11. INIPOMP [Concomitant]

REACTIONS (2)
  - Coma [Recovered/Resolved]
  - Toxicity to various agents [Recovered/Resolved]
